FAERS Safety Report 7792825-X (Version None)
Quarter: 2011Q4

REPORT INFORMATION
  Report Type: 
  Country: None (occurrence: None)
  Receive Date: 20111003
  Receipt Date: 20110927
  Transmission Date: 20120403
  Serious: Yes (Other)
  Sender: FDA-Public Use
  Company Number: US-GLAXOSMITHKLINE-A0946200A

PATIENT
  Sex: Female

DRUGS (4)
  1. VERAPAMIL [Suspect]
     Indication: DIZZINESS
     Route: 065
  2. LAMOTRIGINE [Suspect]
     Indication: EPILEPSY
     Dosage: 100MG FOUR TIMES PER DAY
     Route: 048
     Dates: start: 20080101
  3. MIRAPEX [Concomitant]
  4. TRAZODONE HYDROCHLORIDE [Concomitant]

REACTIONS (5)
  - HYPOAESTHESIA [None]
  - EMOTIONAL DISORDER [None]
  - DIZZINESS [None]
  - DRUG INEFFECTIVE [None]
  - HALLUCINATION [None]
